FAERS Safety Report 21932370 (Version 2)
Quarter: 2023Q1

REPORT INFORMATION
  Report Type: Other
  Country: JP (occurrence: JP)
  Receive Date: 20230131
  Receipt Date: 20230303
  Transmission Date: 20230417
  Serious: Yes (Other)
  Sender: FDA-Public Use
  Company Number: JP-Prasco Laboratories-PRAS20230022

PATIENT
  Age: 79 Year
  Sex: Male

DRUGS (6)
  1. DEXAMETHASONE [Suspect]
     Active Substance: DEXAMETHASONE
     Indication: Leukaemia recurrent
     Dosage: 40 MG/DAY
     Route: 065
  2. CARFILZOMIB [Suspect]
     Active Substance: CARFILZOMIB
     Indication: Leukaemia recurrent
     Dosage: 20 MG/M2
     Route: 065
  3. CARFILZOMIB [Suspect]
     Active Substance: CARFILZOMIB
     Dosage: 27 MG/M2
     Route: 065
  4. LENALIDOMIDE [Suspect]
     Active Substance: LENALIDOMIDE
     Indication: Leukaemia recurrent
     Dosage: 25 MG/BODY
     Route: 065
  5. ACYCLOVIR [Suspect]
     Active Substance: ACYCLOVIR
     Indication: Product used for unknown indication
     Dosage: UNKNOWN
     Route: 065
  6. ASPIRIN [Suspect]
     Active Substance: ASPIRIN
     Indication: Product used for unknown indication
     Dosage: UNKNOWN
     Route: 065

REACTIONS (5)
  - Thrombotic microangiopathy [Recovered/Resolved]
  - Renal impairment [Recovering/Resolving]
  - Thrombocytopenia [Recovering/Resolving]
  - Microangiopathic haemolytic anaemia [Recovering/Resolving]
  - Acute kidney injury [Recovering/Resolving]
